FAERS Safety Report 22252764 (Version 3)
Quarter: 2023Q2

REPORT INFORMATION
  Report Type: Spontaneous
  Country: US (occurrence: US)
  Receive Date: 20230426
  Receipt Date: 20230622
  Transmission Date: 20230722
  Serious: Yes (Hospitalization, Other)
  Sender: FDA-Public Use
  Company Number: US-Ultragenyx Pharmaceutical Inc.-US-UGNX-23-00361

PATIENT
  Age: 1 Year
  Sex: Male
  Weight: 12 kg

DRUGS (1)
  1. DOJOLVI [Suspect]
     Active Substance: TRIHEPTANOIN
     Indication: Very long-chain acyl-coenzyme A dehydrogenase deficiency
     Dosage: 5.6 MILLILITER, Q6H
     Route: 048
     Dates: start: 202207

REACTIONS (3)
  - Gastroenteritis rotavirus [Unknown]
  - Gastroenteritis staphylococcal [Unknown]
  - Croup infectious [Recovered/Resolved]

NARRATIVE: CASE EVENT DATE: 20230406
